FAERS Safety Report 5869860-1 (Version None)
Quarter: 2008Q3

REPORT INFORMATION
  Report Type: 
  Country: None (occurrence: None)
  Receive Date: 20080902
  Receipt Date: 20080826
  Transmission Date: 20090109
  Serious: Yes (Hospitalization)
  Sender: FDA-Public Use
  Company Number: 2008SP002024

PATIENT
  Age: 72 Year
  Sex: Female
  Weight: 72.1 kg

DRUGS (12)
  1. BROVANA [Suspect]
     Indication: CHRONIC OBSTRUCTIVE PULMONARY DISEASE
     Dosage: 15 UG/2ML; BID; INHALATION
     Route: 055
     Dates: start: 20080701
  2. FISH OIL [Concomitant]
  3. SPIRIVA [Concomitant]
  4. XOPENEX HFA INHALATION [Concomitant]
  5. AEROSOL [Concomitant]
  6. ASMANEX TWISTHALER [Concomitant]
  7. ZOCOR [Concomitant]
  8. OXYGEN [Concomitant]
  9. COMBIVENT /01261001/ [Concomitant]
  10. DILTIAZEM HCL [Concomitant]
  11. HYDROCHLOROTHIAZIDE [Concomitant]
  12. DUONEB [Concomitant]

REACTIONS (2)
  - ATRIAL FIBRILLATION [None]
  - CONDITION AGGRAVATED [None]
